FAERS Safety Report 11759491 (Version 2)
Quarter: 2015Q4

REPORT INFORMATION
  Report Type: Report from Study
  Country: US (occurrence: US)
  Receive Date: 20151120
  Receipt Date: 20151130
  Transmission Date: 20160304
  Serious: Yes (Death, Hospitalization)
  Sender: FDA-Public Use
  Company Number: US-ACTELION-A-NJ2015-126737

PATIENT
  Age: 10 Month
  Sex: Female

DRUGS (9)
  1. VENTAVIS [Concomitant]
     Active Substance: ILOPROST
     Indication: PULMONARY HYPERTENSION
     Route: 055
  2. SILDENAFIL. [Concomitant]
     Active Substance: SILDENAFIL
  3. FENTANYL. [Concomitant]
     Active Substance: FENTANYL
  4. ROCURONIUM [Concomitant]
     Active Substance: ROCURONIUM BROMIDE
  5. HYDROCORTISONE. [Concomitant]
     Active Substance: HYDROCORTISONE
  6. VERSED [Concomitant]
     Active Substance: MIDAZOLAM HYDROCHLORIDE
  7. DILAUDID [Concomitant]
     Active Substance: HYDROMORPHONE HYDROCHLORIDE
  8. TRACLEER [Suspect]
     Active Substance: BOSENTAN
     Indication: PULMONARY HYPERTENSION
     Dosage: 15.625 MG, QD
     Route: 048
     Dates: start: 20150825, end: 20151115
  9. VECURONIUM [Concomitant]
     Active Substance: VECURONIUM BROMIDE

REACTIONS (4)
  - Feeding disorder of infancy or early childhood [Not Recovered/Not Resolved]
  - Bacteraemia [Fatal]
  - Heart disease congenital [Not Recovered/Not Resolved]
  - Septic shock [Fatal]
